FAERS Safety Report 23105579 (Version 1)
Quarter: 2023Q4

REPORT INFORMATION
  Report Type: Spontaneous
  Country: US (occurrence: None)
  Receive Date: 20231023
  Receipt Date: 20231023
  Transmission Date: 20240109
  Serious: Yes (Hospitalization)
  Sender: FDA-Public Use
  Company Number: None

PATIENT
  Age: 86 Year
  Sex: Male
  Weight: 70 kg

DRUGS (2)
  1. METOPROLOL TARTRATE [Suspect]
     Active Substance: METOPROLOL TARTRATE
     Dates: start: 20230410, end: 20230420
  2. APIXABAN [Suspect]
     Active Substance: APIXABAN

REACTIONS (6)
  - Fatigue [None]
  - Hallucination [None]
  - Confusional state [None]
  - Delirium [None]
  - Dementia [None]
  - Therapy interrupted [None]

NARRATIVE: CASE EVENT DATE: 20230411
